FAERS Safety Report 18264001 (Version 2)
Quarter: 2020Q4

REPORT INFORMATION
  Report Type: Report from Study
  Country: None (occurrence: US)
  Receive Date: 20200914
  Receipt Date: 20201210
  Transmission Date: 20210113
  Serious: Yes (Other)
  Sender: FDA-Public Use
  Company Number: US-ABBVIE-20P-163-3424242-00

PATIENT
  Sex: Male

DRUGS (3)
  1. IMBRUVICA [Suspect]
     Active Substance: IBRUTINIB
     Route: 048
  2. IMBRUVICA [Suspect]
     Active Substance: IBRUTINIB
     Indication: LYMPHOCYTIC LEUKAEMIA
     Route: 048
     Dates: start: 20190611
  3. IMBRUVICA [Suspect]
     Active Substance: IBRUTINIB
     Route: 048
     Dates: start: 20190612

REACTIONS (8)
  - Cough [Unknown]
  - Inguinal hernia [Unknown]
  - Muscle spasms [Unknown]
  - Stress [Unknown]
  - Umbilical hernia [Unknown]
  - Contusion [Unknown]
  - Hypersensitivity [Unknown]
  - Arthralgia [Unknown]
